FAERS Safety Report 8811389 (Version 1)
Quarter: 2012Q4

REPORT INFORMATION
  Report Type: Spontaneous
  Country: US (occurrence: None)
  Receive Date: 20120924
  Receipt Date: 20120924
  Transmission Date: 20130627
  Serious: Yes (Hospitalization, Other)
  Sender: FDA-Public Use
  Company Number: 2012MA011129

PATIENT
  Age: 33 Year
  Sex: Female

DRUGS (5)
  1. LEVETIRACETAM [Suspect]
     Indication: SEIZURE
  2. CARBAMAZEPINE [Concomitant]
  3. PHENYTOIN [Concomitant]
  4. TOPIRAMATE [Concomitant]
  5. LAMOTRIGINE [Concomitant]

REACTIONS (5)
  - Rash maculo-papular [None]
  - Swelling face [None]
  - Lip swelling [None]
  - Swollen tongue [None]
  - Cross sensitivity reaction [None]
